FAERS Safety Report 5721537-9 (Version None)
Quarter: 2008Q2

REPORT INFORMATION
  Report Type: 
  Country: None (occurrence: None)
  Receive Date: 20080428
  Receipt Date: 20080428
  Transmission Date: 20081010
  Serious: Yes (Other)
  Sender: FDA-Public Use
  Company Number: None

PATIENT
  Age: 30 Year
  Sex: Female
  Weight: 49.8957 kg

DRUGS (1)
  1. XANAX [Suspect]
     Indication: ANXIETY
     Dosage: 1 MG EVERY 6-8 HOURS PO
     Route: 048
     Dates: start: 20031020, end: 20080120

REACTIONS (2)
  - DRUG TOLERANCE [None]
  - WITHDRAWAL SYNDROME [None]
